FAERS Safety Report 5189989-3 (Version None)
Quarter: 2006Q4

REPORT INFORMATION
  Report Type: 
  Country: None (occurrence: None)
  Receive Date: 20061215
  Receipt Date: 20061203
  Transmission Date: 20070319
  Serious: Yes (Hospitalization)
  Sender: FDA-Public Use
  Company Number: 2006148875

PATIENT
  Age: 6 Year
  Sex: Male

DRUGS (3)
  1. AZITHROMYCIN [Suspect]
     Indication: TONSILLITIS STREPTOCOCCAL
     Dosage: (20 MG/KG)
  2. ACAMOL (PARACETAMOL) [Concomitant]
  3. IBUPROFEN [Concomitant]

REACTIONS (2)
  - HALLUCINATION [None]
  - HEADACHE [None]
